FAERS Safety Report 8711406 (Version 2)
Quarter: 2013Q3

REPORT INFORMATION
  Report Type: Spontaneous
  Country: US (occurrence: US)
  Receive Date: 20120807
  Receipt Date: 20130709
  Transmission Date: 20140515
  Serious: Yes (Other)
  Sender: FDA-Public Use
  Company Number: US-BAYER-2012-077631

PATIENT
  Age: 18 Year
  Sex: Female
  Weight: 88.89 kg

DRUGS (5)
  1. MIRENA [Suspect]
     Dosage: 20 MCG/24HR, CONT
     Route: 015
     Dates: start: 20120615
  2. MIRENA [Suspect]
     Dosage: 20 MCG/24HR, CONT
     Route: 015
  3. ALBUTEROL [Concomitant]
  4. IRON [Concomitant]
  5. VITAMIIN C [Concomitant]

REACTIONS (4)
  - Pregnancy with contraceptive device [None]
  - Medication error [None]
  - Cholelithiasis [None]
  - Pancreatitis [None]
